FAERS Safety Report 17094407 (Version 1)
Quarter: 2019Q4

REPORT INFORMATION
  Report Type: Spontaneous
  Country: US (occurrence: US)
  Receive Date: 20191129
  Receipt Date: 20191129
  Transmission Date: 20200122
  Serious: Yes (Death, Hospitalization, Other)
  Sender: FDA-Public Use
  Company Number: US-ABBVIE-19K-163-3161610-00

PATIENT
  Age: 77 Year
  Sex: Female

DRUGS (4)
  1. OBNUTUZUMAB [Concomitant]
     Indication: PRODUCT USED FOR UNKNOWN INDICATION
     Dosage: C1D15
     Dates: start: 20190730
  2. OBNUTUZUMAB [Concomitant]
     Dosage: C2
     Dates: start: 20190813
  3. IMBRUVICA [Suspect]
     Active Substance: IBRUTINIB
     Indication: PRODUCT USED FOR UNKNOWN INDICATION
     Dosage: 560 MG, DAILY
     Route: 048
     Dates: start: 20180418
  4. PROCRIT [Concomitant]
     Active Substance: ERYTHROPOIETIN
     Indication: PRODUCT USED FOR UNKNOWN INDICATION
     Dosage: WEEKLY THRICE

REACTIONS (4)
  - Acute respiratory distress syndrome [Fatal]
  - Respiratory failure [Fatal]
  - Pulmonary oedema [Fatal]
  - Pneumonia [Fatal]

NARRATIVE: CASE EVENT DATE: 20190906
